FAERS Safety Report 24327827 (Version 1)
Quarter: 2024Q3

REPORT INFORMATION
  Report Type: Report from Study
  Country: US (occurrence: None)
  Receive Date: 20240917
  Receipt Date: 20240917
  Transmission Date: 20241017
  Serious: Yes (Other)
  Sender: ASTRAZENECA
  Company Number: 2024A210497

PATIENT
  Sex: Female

DRUGS (1)
  1. LYNPARZA [Suspect]
     Active Substance: OLAPARIB
     Indication: Breast cancer female
     Route: 048

REACTIONS (6)
  - Pneumonitis [Unknown]
  - Lung disorder [Unknown]
  - Choking [Unknown]
  - Sleep disorder [Unknown]
  - Feeding disorder [Unknown]
  - Fatigue [Unknown]
